FAERS Safety Report 14964754 (Version 1)
Quarter: 2018Q2

REPORT INFORMATION
  Report Type: Spontaneous
  Country: CN (occurrence: CN)
  Receive Date: 20180601
  Receipt Date: 20180601
  Transmission Date: 20180711
  Serious: Yes (Death)
  Sender: FDA-Public Use
  Company Number: CN-ROCHE-2132065

PATIENT
  Age: 58 Year
  Sex: Female
  Weight: 45 kg

DRUGS (1)
  1. ACTEMRA [Suspect]
     Active Substance: TOCILIZUMAB
     Indication: STILL^S DISEASE
     Dosage: 80MG * 4 PER TIME
     Route: 041
     Dates: start: 20180522, end: 20180522

REACTIONS (6)
  - Product use issue [Fatal]
  - Neutrophil count decreased [Fatal]
  - Platelet count decreased [Fatal]
  - Histiocytosis haematophagic [Fatal]
  - Condition aggravated [Fatal]
  - Hepatic enzyme increased [Fatal]
